FAERS Safety Report 9311588 (Version 1)
Quarter: 2013Q2

REPORT INFORMATION
  Report Type: Spontaneous
  Country: US (occurrence: US)
  Receive Date: 20130528
  Receipt Date: 20130528
  Transmission Date: 20140414
  Serious: Yes (Hospitalization)
  Sender: FDA-Public Use
  Company Number: US-SANOFI-AVENTIS-2013SA052743

PATIENT
  Age: 72 Year
  Sex: Male

DRUGS (2)
  1. ZALTRAP [Suspect]
  2. CAPECITABINE [Suspect]

REACTIONS (2)
  - Mucosal inflammation [Recovered/Resolved]
  - Dehydration [Recovered/Resolved]
